FAERS Safety Report 12954335 (Version 1)
Quarter: 2016Q4

REPORT INFORMATION
  Report Type: Spontaneous
  Country: US (occurrence: US)
  Receive Date: 20161118
  Receipt Date: 20161118
  Transmission Date: 20170207
  Serious: No
  Sender: FDA-Public Use
  Company Number: US-MYLANLABS-2015M1043737

PATIENT
  Sex: Male

DRUGS (1)
  1. NADOLOL. [Suspect]
     Active Substance: NADOLOL
     Dosage: UNK

REACTIONS (1)
  - Drug ineffective [Recovered/Resolved]
